FAERS Safety Report 10078307 (Version 2)
Quarter: 2014Q2

REPORT INFORMATION
  Report Type: Spontaneous
  Country: IN (occurrence: IN)
  Receive Date: 20140415
  Receipt Date: 20140421
  Transmission Date: 20141212
  Serious: Yes (Death, Other)
  Sender: FDA-Public Use
  Company Number: IN-ROCHE-1377476

PATIENT
  Age: 49 Year
  Sex: Female

DRUGS (2)
  1. HERCEPTIN [Suspect]
     Indication: BREAST CANCER
     Dosage: MOST RECENT DOSE: SEP/2012
     Route: 065
     Dates: end: 201210
  2. HERCEPTIN [Suspect]
     Route: 065
     Dates: end: 201311

REACTIONS (7)
  - Death [Fatal]
  - Vena cava thrombosis [Unknown]
  - Hepatic neoplasm [Unknown]
  - Metastases to central nervous system [Unknown]
  - Ascites [Unknown]
  - Pleural effusion [Unknown]
  - Metastases to liver [Unknown]
